FAERS Safety Report 5145484-9 (Version None)
Quarter: 2006Q4

REPORT INFORMATION
  Report Type: 
  Country: None (occurrence: None)
  Receive Date: 20061102
  Receipt Date: 20061026
  Transmission Date: 20070319
  Serious: Yes (Other)
  Sender: FDA-Public Use
  Company Number: GXKR2006DE06755

PATIENT
  Age: 31 Year
  Sex: Male
  Weight: 87 kg

DRUGS (1)
  1. CEFTRIAXON HEXAL (NGX)(CEFTRIAXONE) POWDER FOR SOL INF, 2G [Suspect]
     Indication: NEUROBORRELIOSIS
     Dosage: 2 G, INFUSION
     Dates: start: 20060902, end: 20060904

REACTIONS (6)
  - DYSPNOEA [None]
  - LARYNGEAL OEDEMA [None]
  - OEDEMA PERIPHERAL [None]
  - PRURITUS [None]
  - SKIN INDURATION [None]
  - SWELLING FACE [None]
